FAERS Safety Report 4521193-1 (Version None)
Quarter: 2004Q4

REPORT INFORMATION
  Report Type: 
  Country: None (occurrence: None)
  Receive Date: 20041208
  Receipt Date: 20041019
  Transmission Date: 20050328
  Serious: Yes (Other)
  Sender: FDA-Public Use
  Company Number: CN-MERCK-0410CHN00033

PATIENT
  Age: 48 Year
  Sex: Female

DRUGS (14)
  1. VIOXX [Suspect]
     Indication: POST PROCEDURAL PAIN
     Route: 048
     Dates: start: 20040803, end: 20040805
  2. VIOXX [Suspect]
     Route: 048
     Dates: start: 20040810, end: 20040816
  3. VIOXX [Suspect]
     Route: 048
     Dates: start: 20040817, end: 20041001
  4. FENTANYL [Concomitant]
     Indication: POST PROCEDURAL PAIN
     Route: 061
  5. ACETAMINOPHEN AND PROPOXYPHENE NAPSYLATE [Concomitant]
     Indication: PAIN
     Route: 065
  6. INDOMETHACIN [Concomitant]
     Indication: PAIN
     Route: 065
  7. RED SAGE [Concomitant]
     Indication: PROPHYLAXIS
     Route: 048
  8. ETHAMBUTOL HYDROCHLORIDE [Concomitant]
     Indication: BONE TUBERCULOSIS
     Route: 048
     Dates: start: 20040804
  9. ETHAMBUTOL HYDROCHLORIDE [Concomitant]
     Route: 051
     Dates: start: 20040729, end: 20040729
  10. RIFAMPIN [Concomitant]
     Indication: BONE TUBERCULOSIS
     Route: 048
     Dates: start: 20040804
  11. DIAZEPAM [Concomitant]
     Route: 048
     Dates: start: 20040803, end: 20040806
  12. METOCLOPRAMIDE [Concomitant]
     Route: 048
     Dates: start: 20040804, end: 20040805
  13. ISONIAZID [Concomitant]
     Indication: BONE TUBERCULOSIS
     Route: 048
     Dates: start: 20040804
  14. ISONIAZID [Concomitant]
     Route: 051
     Dates: start: 20040729, end: 20040729

REACTIONS (10)
  - BUNDLE BRANCH BLOCK RIGHT [None]
  - DYSPHORIA [None]
  - DYSPNOEA [None]
  - ELECTROCARDIOGRAM T WAVE ABNORMAL [None]
  - HYPERHIDROSIS [None]
  - INSOMNIA [None]
  - NAUSEA [None]
  - SUPRAVENTRICULAR TACHYCARDIA [None]
  - TACHYCARDIA [None]
  - VOMITING [None]
